FAERS Safety Report 24189824 (Version 2)
Quarter: 2024Q3

REPORT INFORMATION
  Report Type: Spontaneous
  Country: US (occurrence: US)
  Receive Date: 20240808
  Receipt Date: 20240913
  Transmission Date: 20241016
  Serious: No
  Sender: ROCHE
  Company Number: US-ROCHE-10000042345

PATIENT
  Age: 60 Year
  Sex: Male

DRUGS (2)
  1. XOLAIR [Suspect]
     Active Substance: OMALIZUMAB
     Indication: Product used for unknown indication
     Dosage: TWO 150MG PFS AND ONE 75MG PFS EVERY OTHER WEEK
     Route: 058
  2. XOLAIR [Suspect]
     Active Substance: OMALIZUMAB
     Dosage: TWO 150MG PFS AND ONE 75MG PFS EVERY OTHER WEEK
     Route: 058

REACTIONS (8)
  - Accidental underdose [Unknown]
  - Accidental exposure to product [Unknown]
  - Product quality issue [Unknown]
  - Product complaint [Unknown]
  - Needle issue [Unknown]
  - Product packaging issue [Unknown]
  - Device defective [Unknown]
  - No adverse event [Unknown]

NARRATIVE: CASE EVENT DATE: 20240726
